FAERS Safety Report 12249166 (Version 1)
Quarter: 2016Q2

REPORT INFORMATION
  Report Type: Spontaneous
  Country: CH (occurrence: CH)
  Receive Date: 20160408
  Receipt Date: 20160408
  Transmission Date: 20160815
  Serious: Yes (Other)
  Sender: FDA-Public Use
  Company Number: CH-PFIZER INC-2016183701

PATIENT
  Sex: Female

DRUGS (1)
  1. CLIMOPAX [Suspect]
     Active Substance: ESTROGENS, CONJUGATED\MEDROXYPROGESTERONE ACETATE
     Dosage: 0.625 MG, UNK
     Dates: start: 2013

REACTIONS (2)
  - Retinal vascular thrombosis [Unknown]
  - Diplopia [Unknown]
